FAERS Safety Report 9921340 (Version 1)
Quarter: 2014Q1

REPORT INFORMATION
  Report Type: Spontaneous
  Country: PL (occurrence: PL)
  Receive Date: 20140225
  Receipt Date: 20140225
  Transmission Date: 20141002
  Serious: Yes (Other)
  Sender: FDA-Public Use
  Company Number: PL-JNJFOC-20140211227

PATIENT
  Age: 64 Year
  Sex: Female
  Weight: 71 kg

DRUGS (3)
  1. DOXORUBICIN HYDROCHLORIDE [Suspect]
     Indication: BREAST CANCER
     Dosage: DOSE 84 (UNITS NOT SPECIFIED)
     Route: 042
     Dates: start: 20140108
  2. 5-FLUOROURACIL [Suspect]
     Indication: BREAST CANCER
     Dosage: DOSE GIVEN AS 840 (UNITS NOT SPECIFIED)
     Dates: start: 20140108
  3. CYCLOPHOSPHAMIDE [Suspect]
     Indication: BREAST CANCER
     Dosage: DOSE GIVEN AS 840 (UNITS NOT SPECIFIED)
     Route: 065
     Dates: start: 20140108

REACTIONS (2)
  - Neutropenia [Recovering/Resolving]
  - Lymphopenia [Recovering/Resolving]
